FAERS Safety Report 12349698 (Version 2)
Quarter: 2016Q2

REPORT INFORMATION
  Report Type: Spontaneous
  Country: US (occurrence: US)
  Receive Date: 20160510
  Receipt Date: 20160524
  Transmission Date: 20160815
  Serious: Yes (Other)
  Sender: FDA-Public Use
  Company Number: US-BEH-2016062197

PATIENT
  Sex: Female
  Weight: 121 kg

DRUGS (25)
  1. HIZENTRA [Suspect]
     Active Substance: HUMAN IMMUNOGLOBULIN G
     Indication: HYPOGAMMAGLOBULINAEMIA
     Route: 058
     Dates: start: 20140225
  2. PROMETHAZINE [Concomitant]
     Active Substance: PROMETHAZINE\PROMETHAZINE HYDROCHLORIDE
  3. CORTICOSTEROIDS [Concomitant]
     Active Substance: CORTICOSTEROID NOS
  4. SINGULAIR [Concomitant]
     Active Substance: MONTELUKAST SODIUM
  5. XOPENEX [Concomitant]
     Active Substance: LEVALBUTEROL HYDROCHLORIDE
  6. DIPHENHYDRAMINE. [Concomitant]
     Active Substance: DIPHENHYDRAMINE
  7. EPIPEN [Concomitant]
     Active Substance: EPINEPHRINE
  8. PANTOPRAZOLE [Concomitant]
     Active Substance: PANTOPRAZOLE SODIUM
  9. IPRAT-ALBUT [Concomitant]
  10. LEVEMIR [Concomitant]
     Active Substance: INSULIN DETEMIR
  11. DOMPERIDONE [Concomitant]
     Active Substance: DOMPERIDONE
  12. KLONOPIN [Concomitant]
     Active Substance: CLONAZEPAM
  13. CETIRIZINE [Concomitant]
     Active Substance: CETIRIZINE HYDROCHLORIDE
  14. TAZTIA XT [Concomitant]
     Active Substance: DILTIAZEM HYDROCHLORIDE
  15. RACEPINEPHRINE [Concomitant]
     Active Substance: RACEPINEPHRINE
  16. TORSEMIDE. [Concomitant]
     Active Substance: TORSEMIDE
  17. BUDESONIDE. [Concomitant]
     Active Substance: BUDESONIDE
  18. RELPAX [Concomitant]
     Active Substance: ELETRIPTAN HYDROBROMIDE
  19. TOPAMAX [Concomitant]
     Active Substance: TOPIRAMATE
  20. LMX [Concomitant]
     Active Substance: LIDOCAINE
  21. LEVOCETIRIZINE [Concomitant]
     Active Substance: LEVOCETIRIZINE
  22. HUMULIN NOS [Concomitant]
     Active Substance: INSULIN HUMAN
  23. OPIOID ANAESTHETICS [Concomitant]
     Active Substance: UNSPECIFIED INGREDIENT
  24. CLORAR [Concomitant]
  25. CYMBALTA [Concomitant]
     Active Substance: DULOXETINE HYDROCHLORIDE

REACTIONS (1)
  - Asthma [Unknown]
